FAERS Safety Report 4282947-2 (Version None)
Quarter: 2004Q1

REPORT INFORMATION
  Report Type: 
  Country: None (occurrence: None)
  Receive Date: 20040130
  Receipt Date: 20030714
  Transmission Date: 20041129
  Serious: Yes (Hospitalization, Other)
  Sender: FDA-Public Use
  Company Number: PHNU2003DE02712

PATIENT
  Age: 75 Year
  Sex: Male

DRUGS (7)
  1. CONCOR COR                              /GFR/ [Concomitant]
     Indication: HYPERTENSION
     Dosage: 3.75 MG, QD
     Route: 048
     Dates: start: 20010101
  2. CORANGIN ^NOVARTIS^ [Concomitant]
     Indication: CARDIAC FAILURE
     Dosage: 40 MG, BID
     Route: 048
     Dates: start: 20010101
  3. ASPIRIN [Concomitant]
     Dosage: 100 MG, QD
     Route: 048
  4. NEURONTIN [Concomitant]
     Dosage: 300 MG, TID
     Route: 048
  5. DURAGESIC [Concomitant]
     Dosage: 25 UG, Q72H
     Route: 062
  6. GLEEVEC [Suspect]
     Indication: CHRONIC MYELOID LEUKAEMIA
     Dosage: 300MG/DAY
     Route: 048
     Dates: end: 20040116
  7. GLEEVEC [Suspect]
     Dosage: 400MG/DAY
     Route: 048
     Dates: start: 20030505, end: 20030101

REACTIONS (7)
  - ALVEOLITIS ALLERGIC [None]
  - ALVEOLITIS FIBROSING [None]
  - DYSPNOEA [None]
  - HAEMOPTYSIS [None]
  - INTERSTITIAL LUNG DISEASE [None]
  - LUNG INFILTRATION [None]
  - LYMPHADENOPATHY MEDIASTINAL [None]
